FAERS Safety Report 6455482-0 (Version None)
Quarter: 2009Q4

REPORT INFORMATION
  Report Type: 
  Country: None (occurrence: None)
  Receive Date: 20091125
  Receipt Date: 20091002
  Transmission Date: 20100525
  Serious: No
  Sender: FDA-Public Use
  Company Number: US-ABBOTT-09P-163-0601053-00

PATIENT
  Sex: Male
  Weight: 83.536 kg

DRUGS (6)
  1. SIMCOR [Suspect]
     Indication: BLOOD CHOLESTEROL INCREASED
     Dosage: 500MG/20MG DAILY
     Route: 048
     Dates: start: 20090701
  2. FISH OIL [Concomitant]
     Indication: BLOOD CHOLESTEROL INCREASED
  3. FLOMAX [Concomitant]
     Indication: PROSTATOMEGALY
     Route: 048
  4. COUMADIN [Concomitant]
     Indication: ANTICOAGULANT THERAPY
     Route: 048
  5. PROPAFENONE [Concomitant]
     Indication: ATRIAL FIBRILLATION
     Route: 048
  6. OMEPRAZOLE [Concomitant]
     Indication: GASTROOESOPHAGEAL REFLUX DISEASE
     Route: 048

REACTIONS (2)
  - FLUSHING [None]
  - SOMNOLENCE [None]
